FAERS Safety Report 5151353-0 (Version None)
Quarter: 2006Q4

REPORT INFORMATION
  Report Type: 
  Country: None (occurrence: None)
  Receive Date: 20061115
  Receipt Date: 20061103
  Transmission Date: 20070319
  Serious: Yes (Other)
  Sender: FDA-Public Use
  Company Number: PHEH2006US13740

PATIENT
  Age: 46 Year
  Sex: Male
  Weight: 81.632 kg

DRUGS (2)
  1. ZOMETA [Suspect]
     Indication: MULTIPLE MYELOMA
     Dosage: 4MG QMO
     Dates: start: 20060802, end: 20060902
  2. THALIDOMIDE [Concomitant]

REACTIONS (1)
  - OSTEONECROSIS [None]
